FAERS Safety Report 15998623 (Version 3)
Quarter: 2019Q1

REPORT INFORMATION
  Report Type: Spontaneous
  Country: CZ (occurrence: CZ)
  Receive Date: 20190223
  Receipt Date: 20190329
  Transmission Date: 20190418
  Serious: Yes (Other)
  Sender: FDA-Public Use
  Company Number: CZ-ACCORD-108209

PATIENT
  Age: 71 Year
  Sex: Male

DRUGS (8)
  1. SERTRALINE [Suspect]
     Active Substance: SERTRALINE HYDROCHLORIDE
     Indication: PRODUCT USED FOR UNKNOWN INDICATION
     Dosage: 150 MILLIGRAM DAILY
     Route: 065
  2. MIDAZOLAM [Concomitant]
     Active Substance: MIDAZOLAM HYDROCHLORIDE
     Indication: SEDATIVE THERAPY
  3. ROPINIROLE/ROPINIROLE HYDROCHLORIDE [Concomitant]
     Dosage: GRADUALLY DISCONTINUED BY HALF A DOSE EVETY TWO DAYS,DAILY DOSE: 16 MG/DAY
  4. OXAZEPAM. [Suspect]
     Active Substance: OXAZEPAM
     Indication: PRODUCT USED FOR UNKNOWN INDICATION
     Route: 065
  5. CARBIDOPA/LEVODOPA [Concomitant]
     Dosage: 100/25 MG 6X1 TABLET?HALF A TABLET SIX TIMES DAILY
     Route: 048
  6. QUETIAPINE. [Suspect]
     Active Substance: QUETIAPINE
     Indication: PRODUCT USED FOR UNKNOWN INDICATION
     Dosage: 100 MILLIGRAM DAILY
     Route: 048
  7. RIVASTIGMINE/RIVASTIGMINE TARTRATE [Concomitant]
     Dosage: DAILY DOSE: 6 MG/DAY
  8. CARBIDOPA/ENTACAPONE/LEVODOPA [Concomitant]
     Dosage: (100/50/200 MG, ONE TABLET SIX?TIMES DAILY)
     Route: 048

REACTIONS (7)
  - Mobility decreased [Unknown]
  - Depression [Recovering/Resolving]
  - Psychotic disorder [Unknown]
  - Aggression [Unknown]
  - Parkinson^s disease [Unknown]
  - Drug effect incomplete [Unknown]
  - Gait inability [Recovering/Resolving]
